FAERS Safety Report 19085873 (Version 3)
Quarter: 2022Q1

REPORT INFORMATION
  Report Type: Report from Study
  Country: US (occurrence: US)
  Receive Date: 20210402
  Receipt Date: 20220112
  Transmission Date: 20220423
  Serious: Yes (Death, Other)
  Sender: FDA-Public Use
  Company Number: US-ACADIA PHARMACEUTICALS INC.-ACA-2021-PIM-000946

PATIENT
  Sex: Male

DRUGS (10)
  1. NUPLAZID [Suspect]
     Active Substance: PIMAVANSERIN TARTRATE
     Indication: Parkinson^s disease
     Dosage: 34 MILLIGRAM, QD
     Route: 048
     Dates: start: 20210115, end: 20211112
  2. MEMANTINE [Concomitant]
     Active Substance: MEMANTINE
  3. SINEMET [Concomitant]
     Active Substance: CARBIDOPA\LEVODOPA
  4. DONEPEZIL [Concomitant]
     Active Substance: DONEPEZIL
  5. LOSARTAN [Concomitant]
     Active Substance: LOSARTAN
  6. SULFASALAZINE [Concomitant]
     Active Substance: SULFASALAZINE
  7. PRAVASTATIN [Concomitant]
     Active Substance: PRAVASTATIN
  8. FLUTICASONE [Concomitant]
     Active Substance: FLUTICASONE
  9. OMEPRAZOLE [Concomitant]
     Active Substance: OMEPRAZOLE
  10. TRAZODONE [Concomitant]
     Active Substance: TRAZODONE HYDROCHLORIDE

REACTIONS (5)
  - Aspiration [Recovered/Resolved]
  - Dementia with Lewy bodies [Recovered/Resolved]
  - Parkinson^s disease [Recovered/Resolved]
  - Abnormal behaviour [Unknown]
  - Sleep disorder [Unknown]
